FAERS Safety Report 9272564 (Version 1)
Quarter: 2013Q2

REPORT INFORMATION
  Report Type: Spontaneous
  Country: FR (occurrence: FR)
  Receive Date: 20130506
  Receipt Date: 20130506
  Transmission Date: 20140414
  Serious: Yes (Hospitalization)
  Sender: FDA-Public Use
  Company Number: FR-GLAXOSMITHKLINE-B0881977A

PATIENT
  Sex: Female

DRUGS (3)
  1. TROBALT [Suspect]
     Indication: EPILEPSY
     Route: 048
     Dates: start: 201303, end: 201304
  2. LYRICA [Concomitant]
     Indication: EPILEPSY
     Dosage: 450MG PER DAY
     Route: 048
     Dates: start: 2008
  3. ZONEGRAN [Concomitant]
     Indication: EPILEPSY
     Dosage: 500MG PER DAY
     Route: 048
     Dates: start: 2011

REACTIONS (2)
  - Hallucination, auditory [Recovered/Resolved]
  - Inappropriate schedule of drug administration [Unknown]
